FAERS Safety Report 5495662-4 (Version None)
Quarter: 2007Q4

REPORT INFORMATION
  Report Type: 
  Country: None (occurrence: None)
  Receive Date: 20071025
  Receipt Date: 20071015
  Transmission Date: 20080405
  Serious: Yes (Hospitalization)
  Sender: FDA-Public Use
  Company Number: NL-TYCO HEALTHCARE/MALLINCKRODT-T200701259

PATIENT

DRUGS (8)
  1. PAMELOR [Suspect]
  2. RESTORIL [Suspect]
  3. OLANZAPINE [Concomitant]
  4. OXAZEPAM [Concomitant]
  5. PAROXETINE [Concomitant]
  6. ATENOLOL [Concomitant]
  7. IRBESARTAN [Concomitant]
  8. HYDROCHLOROTHIAZIDE [Concomitant]

REACTIONS (2)
  - COMA [None]
  - POISONING [None]
